FAERS Safety Report 10269942 (Version 1)
Quarter: 2014Q2

REPORT INFORMATION
  Report Type: Report from Study
  Country: CZ (occurrence: None)
  Receive Date: 20140625
  Receipt Date: 20140625
  Transmission Date: 20141212
  Serious: Yes (Hospitalization)
  Sender: FDA-Public Use
  Company Number: 2396880

PATIENT
  Age: 65 Year
  Sex: Female
  Weight: 78 kg

DRUGS (5)
  1. (PACLITAXEL) [Suspect]
     Indication: OVARIAN CANCER
     Dates: start: 20130213, end: 20131016
  2. (LINSITINIB [Concomitant]
  3. GUAIFENESIN W/PARACETAMOL [Concomitant]
  4. LEVOTHYROXINE SODIUM [Concomitant]
  5. LOSARTAN POTASSIUM [Concomitant]

REACTIONS (4)
  - Vomiting [None]
  - Abdominal pain [None]
  - Dyspepsia [None]
  - Food poisoning [None]
